FAERS Safety Report 12186530 (Version 4)
Quarter: 2017Q2

REPORT INFORMATION
  Report Type: Report from Study
  Country: DE (occurrence: DE)
  Receive Date: 20160317
  Receipt Date: 20170522
  Transmission Date: 20170830
  Serious: Yes (Hospitalization, Other)
  Sender: FDA-Public Use
  Company Number: DE-ROCHE-1726549

PATIENT
  Sex: Male

DRUGS (7)
  1. IBUPROFEN. [Concomitant]
     Active Substance: IBUPROFEN
     Route: 065
  2. ASPIRIN. [Concomitant]
     Active Substance: ASPIRIN
     Route: 065
  3. LISINOPRIL. [Concomitant]
     Active Substance: LISINOPRIL
     Indication: HYPERTENSION
  4. ROACTEMRA [Suspect]
     Active Substance: TOCILIZUMAB
     Indication: RHEUMATOID ARTHRITIS
     Route: 058
     Dates: start: 20140602, end: 20160209
  5. INSULIN [Concomitant]
     Active Substance: INSULIN NOS
  6. SIMVAHEXAL [Concomitant]
     Active Substance: SIMVASTATIN
  7. ADENURIC [Concomitant]
     Active Substance: FEBUXOSTAT

REACTIONS (8)
  - Arthralgia [Unknown]
  - Rheumatoid nodule [Not Recovered/Not Resolved]
  - Musculoskeletal pain [Recovering/Resolving]
  - Benign neoplasm [Unknown]
  - Arthralgia [Recovering/Resolving]
  - Joint swelling [Unknown]
  - Thyroid mass [Unknown]
  - Weight increased [Not Recovered/Not Resolved]

NARRATIVE: CASE EVENT DATE: 20140602
